FAERS Safety Report 12320298 (Version 2)
Quarter: 2016Q2

REPORT INFORMATION
  Report Type: Spontaneous
  Country: US (occurrence: US)
  Receive Date: 20160501
  Receipt Date: 20160623
  Transmission Date: 20160815
  Serious: No
  Sender: FDA-Public Use
  Company Number: PHEH2016US010713

PATIENT
  Age: 60 Year
  Sex: Male

DRUGS (2)
  1. ENTRESTO [Suspect]
     Active Substance: SACUBITRIL\VALSARTAN
     Indication: CARDIOMYOPATHY
     Dosage: 50 (24/26) UNK, BID
     Route: 048
     Dates: start: 20160208, end: 20160426
  2. ENTRESTO [Suspect]
     Active Substance: SACUBITRIL\VALSARTAN
     Dosage: UNK
     Route: 048
     Dates: start: 20160505

REACTIONS (3)
  - Myalgia [Recovering/Resolving]
  - Product use issue [Unknown]
  - Muscular weakness [Recovering/Resolving]

NARRATIVE: CASE EVENT DATE: 20160426
